FAERS Safety Report 4798896-7 (Version None)
Quarter: 2005Q4

REPORT INFORMATION
  Report Type: 
  Country: None (occurrence: None)
  Receive Date: 20051014
  Receipt Date: 20051007
  Transmission Date: 20060501
  Serious: Yes (Other)
  Sender: FDA-Public Use
  Company Number: JP-BRISTOL-MYERS SQUIBB COMPANY-13136692

PATIENT
  Age: 80 Year
  Sex: Male

DRUGS (5)
  1. TAXOL [Suspect]
     Indication: GASTRIC CANCER
     Route: 042
     Dates: start: 20050901, end: 20050929
  2. ORGADRONE [Concomitant]
     Route: 041
     Dates: start: 20050901, end: 20050929
  3. GASTER [Concomitant]
     Route: 041
     Dates: start: 20050901, end: 20050929
  4. RESTAMIN [Concomitant]
     Route: 048
     Dates: start: 20050901, end: 20050929
  5. KYTRIL [Concomitant]
     Route: 041
     Dates: start: 20050901, end: 20050929

REACTIONS (4)
  - BENIGN PROSTATIC HYPERPLASIA [None]
  - BLADDER DILATATION [None]
  - DYSURIA [None]
  - URINARY RETENTION [None]
